FAERS Safety Report 25865141 (Version 1)
Quarter: 2025Q3

REPORT INFORMATION
  Report Type: Spontaneous
  Country: IN (occurrence: IN)
  Receive Date: 20250930
  Receipt Date: 20250930
  Transmission Date: 20251021
  Serious: Yes (Death, Life-Threatening, Hospitalization, Other)
  Sender: DAITO PHARMACEUTICALS
  Company Number: IN-Daito Pharmaceutical Co., Ltd.-2185612

PATIENT
  Age: 62 Year
  Sex: Male

DRUGS (3)
  1. METHOTREXATE SODIUM [Suspect]
     Active Substance: METHOTREXATE SODIUM
     Indication: Rheumatoid arthritis
  2. PREDNISOLONE [Concomitant]
     Active Substance: PREDNISOLONE
  3. ACECLOFENAC [Concomitant]
     Active Substance: ACECLOFENAC

REACTIONS (7)
  - Respiratory distress [Fatal]
  - Toxicity to various agents [Fatal]
  - Pancytopenia [Fatal]
  - Mucosal inflammation [Fatal]
  - Cardiac arrest [Fatal]
  - Multiple organ dysfunction syndrome [Fatal]
  - Neutropenic sepsis [Fatal]
